FAERS Safety Report 11729451 (Version 1)
Quarter: 2015Q4

REPORT INFORMATION
  Report Type: Spontaneous
  Country: US (occurrence: US)
  Receive Date: 20151110
  Receipt Date: 20151110
  Transmission Date: 20160304
  Serious: No
  Sender: FDA-Public Use
  Company Number: US-ELI_LILLY_AND_COMPANY-US201112006705

PATIENT
  Age: 64 Year
  Sex: Female

DRUGS (2)
  1. FORTEO [Suspect]
     Active Substance: TERIPARATIDE
     Indication: OSTEOPOROSIS
     Dosage: 20 UG, QD
     Dates: start: 20111208
  2. FLU [Concomitant]
     Active Substance: INFLUENZA VIRUS VACCINE

REACTIONS (9)
  - Diarrhoea [Not Recovered/Not Resolved]
  - Nausea [Unknown]
  - Abdominal pain lower [Unknown]
  - Arthralgia [Unknown]
  - Influenza like illness [Unknown]
  - Abdominal pain upper [Unknown]
  - Influenza [Unknown]
  - Fatigue [Unknown]
  - Injection site erythema [Recovered/Resolved]

NARRATIVE: CASE EVENT DATE: 20111218
